FAERS Safety Report 9614035 (Version 2)
Quarter: 2013Q4

REPORT INFORMATION
  Report Type: Report from Study
  Country: CA (occurrence: CA)
  Receive Date: 20131011
  Receipt Date: 20131030
  Transmission Date: 20140711
  Serious: Yes (Other)
  Sender: FDA-Public Use
  Company Number: CA-AMGEN-CANNI2013070105

PATIENT
  Age: 60 Year
  Sex: Male

DRUGS (19)
  1. XGEVA [Suspect]
     Indication: METASTASES TO BONE
     Dosage: 120 MG, Q4WK
     Route: 058
     Dates: start: 20130412, end: 20130510
  2. DENOSUMAB [Suspect]
     Indication: PRODUCT USED FOR UNKNOWN INDICATION
     Route: 065
  3. DOCETAXEL [Suspect]
     Indication: PRODUCT USED FOR UNKNOWN INDICATION
     Dosage: 130 MG, UNK
     Route: 042
     Dates: start: 20130412, end: 20130809
  4. PREDNISONE [Suspect]
     Indication: PRODUCT USED FOR UNKNOWN INDICATION
     Dosage: 5 MG, BID
     Route: 065
  5. RABEPRAZOLE [Concomitant]
     Dosage: 20 MG, QD
  6. DEXAMETHASONE [Concomitant]
     Dosage: 4 MG, QD
  7. CLOTRIMADERM [Concomitant]
     Dosage: UNK UNK, TID
  8. MACROBID                           /00024401/ [Concomitant]
     Dosage: UNK UNK, BID
  9. CIPROFLOXACIN [Concomitant]
     Dosage: 500 MG, BID
  10. TRELSTAR [Concomitant]
     Dosage: 11.25 MG, UNK
     Route: 030
  11. CEPHALEXIN                         /00145501/ [Concomitant]
     Dosage: 500 MG, QID
  12. DOXYCYCLINE [Concomitant]
     Dosage: 100 MG, QD
  13. LANTUS [Concomitant]
     Dosage: 20 UNIT, QD
     Route: 058
  14. HYDROMORPHONE [Concomitant]
     Dosage: 1 MG, AS NECESSARY
  15. SLOW K [Concomitant]
     Dosage: 600 MG, BID
  16. VIMOVO [Concomitant]
     Dosage: UNK UNK, BID
  17. NASONEX AQUEOUS [Concomitant]
     Dosage: UNK UNK, BID
     Route: 045
  18. OXYCOCET [Concomitant]
     Indication: PAIN
     Dosage: 325 MG, AS NECESSARY
  19. CLARITHROMYCIN [Concomitant]
     Dosage: 500 MG, BID

REACTIONS (1)
  - Osteonecrosis of jaw [Not Recovered/Not Resolved]
